FAERS Safety Report 9689817 (Version 1)
Quarter: 2013Q4

REPORT INFORMATION
  Report Type: Spontaneous
  Country: GB (occurrence: GB)
  Receive Date: 20131115
  Receipt Date: 20131115
  Transmission Date: 20140711
  Serious: Yes (Other)
  Sender: FDA-Public Use
  Company Number: GB-BRISTOL-MYERS SQUIBB COMPANY-19812718

PATIENT
  Age: 71 Year
  Sex: 0

DRUGS (1)
  1. GLUCOPHAGE TABS [Suspect]
     Dosage: POWDER ONGOING
     Route: 048

REACTIONS (1)
  - Cerebrovascular accident [Unknown]
